FAERS Safety Report 11091057 (Version 1)
Quarter: 2015Q2

REPORT INFORMATION
  Report Type: Spontaneous
  Country: GB (occurrence: GB)
  Receive Date: 20150505
  Receipt Date: 20150505
  Transmission Date: 20150821
  Serious: Yes (Other)
  Sender: FDA-Public Use
  Company Number: GB-CIPLA LTD.-2015GB03443

PATIENT

DRUGS (13)
  1. ESTRADIOL. [Concomitant]
     Active Substance: ESTRADIOL
     Dosage: 1 DF, QD IN THE MORNING
     Route: 065
     Dates: start: 20140224
  2. CANDESARTAN [Concomitant]
     Active Substance: CANDESARTAN
     Dosage: 1 DF, QD IN THE MORNING
     Route: 065
     Dates: start: 20140224
  3. FLUOXETINE [Concomitant]
     Active Substance: FLUOXETINE\FLUOXETINE HYDROCHLORIDE
     Dosage: 1 DF, QD IN THE MORNING
     Route: 065
     Dates: start: 20140224, end: 20150220
  4. ASPIRIN. [Concomitant]
     Active Substance: ASPIRIN
     Dosage: 1 DF, QD IN THE MORNING
     Route: 065
     Dates: start: 20140224
  5. ATORVASTATIN [Concomitant]
     Active Substance: ATORVASTATIN
     Dosage: 1 DF, QD AT BEDTIME
     Route: 065
     Dates: start: 20140224
  6. NORETHISTERONE [Concomitant]
     Active Substance: NORETHINDRONE
     Dosage: 1 DF, TID
     Route: 065
     Dates: start: 20140224
  7. RANITIDINE [Concomitant]
     Active Substance: RANITIDINE\RANITIDINE HYDROCHLORIDE
     Dosage: 1 DF, BID ONE IN THE MORNING AND ONE IN THE EVENING
     Route: 065
     Dates: start: 20140224
  8. AMLODIPINE [Concomitant]
     Active Substance: AMLODIPINE BESYLATE
     Dosage: 1 DF, QD IN THE MORNING
     Route: 065
     Dates: start: 20140224
  9. BENDROFLUMETHIAZIDE [Concomitant]
     Active Substance: BENDROFLUMETHIAZIDE
     Dosage: 1 DF, QD IN THE MORNING
     Route: 065
     Dates: start: 20140224
  10. BISOPROLOL [Concomitant]
     Active Substance: BISOPROLOL
     Dosage: 1 DF, QD IN THE MORNING
     Route: 065
     Dates: start: 20140224
  11. DOMPERIDONE [Concomitant]
     Active Substance: DOMPERIDONE
     Dosage: 2 DF, TID
     Route: 065
     Dates: start: 20140224
  12. MEDROXYPROGESTERONE ACETATE. [Concomitant]
     Active Substance: MEDROXYPROGESTERONE ACETATE
     Dosage: 1 DF, BID ONE IN THE MORNING AND ONE IN THE EVENING
     Route: 065
     Dates: start: 20140224
  13. SERTRALINE [Suspect]
     Active Substance: SERTRALINE HYDROCHLORIDE
     Dosage: UNK
     Route: 065
     Dates: start: 20150316

REACTIONS (1)
  - Pharyngeal oedema [Recovered/Resolved]

NARRATIVE: CASE EVENT DATE: 20150411
